FAERS Safety Report 4745869-6 (Version None)
Quarter: 2005Q3

REPORT INFORMATION
  Report Type: 
  Country: None (occurrence: None)
  Receive Date: 20050816
  Receipt Date: 20050722
  Transmission Date: 20060218
  Serious: Yes (Other)
  Sender: FDA-Public Use
  Company Number: 2005SE04270

PATIENT
  Age: 11579 Day
  Sex: Female

DRUGS (8)
  1. BLOPRESS [Suspect]
     Indication: BLOOD PRESSURE INCREASED
     Route: 048
     Dates: start: 20041027
  2. BLOPRESS [Suspect]
     Route: 048
  3. BLOPRESS [Suspect]
     Route: 048
  4. FERROMIA [Concomitant]
     Route: 048
  5. MARZULENE S [Concomitant]
     Route: 048
  6. ALOSITOL [Concomitant]
     Route: 048
  7. ADALAT [Concomitant]
     Route: 048
  8. LASIX [Concomitant]
     Route: 042

REACTIONS (10)
  - APGAR SCORE LOW [None]
  - DEATH NEONATAL [None]
  - DRUG EXPOSURE DURING PREGNANCY [None]
  - FOETAL DISORDER [None]
  - OLIGOHYDRAMNIOS [None]
  - POTTER'S SYNDROME [None]
  - PREMATURE BABY [None]
  - PULMONARY HYPOPLASIA [None]
  - RENAL ATROPHY [None]
  - RENAL IMPAIRMENT [None]
